FAERS Safety Report 23701291 (Version 1)
Quarter: 2024Q2

REPORT INFORMATION
  Report Type: Report from Study
  Country: IT (occurrence: IT)
  Receive Date: 20240403
  Receipt Date: 20240403
  Transmission Date: 20240716
  Serious: Yes (Other)
  Sender: FDA-Public Use
  Company Number: None

PATIENT
  Age: 77 Year
  Sex: Female

DRUGS (3)
  1. CARBOPLATIN [Suspect]
     Active Substance: CARBOPLATIN
     Indication: Small cell lung cancer
     Dosage: 366.7 MG CYCLICAL ADMINISTRATION
     Dates: start: 20240115, end: 20240115
  2. ETOPOSIDE [Suspect]
     Active Substance: ETOPOSIDE
     Indication: Small cell lung cancer
     Dosage: 168 MG CYCLICAL ADMINISTRATION
     Dates: start: 20240115, end: 20240115
  3. DURVALUMAB [Suspect]
     Active Substance: DURVALUMAB
     Indication: Small cell lung cancer
     Dosage: 1500 MG CYCLICAL ADMINISTRATION
     Dates: start: 20240115, end: 20240115

REACTIONS (3)
  - Asthenia [Recovered/Resolved]
  - Atrial fibrillation [Recovered/Resolved]
  - Dyspnoea [Recovered/Resolved]

NARRATIVE: CASE EVENT DATE: 20240115
